FAERS Safety Report 14470498 (Version 1)
Quarter: 2018Q1

REPORT INFORMATION
  Report Type: Spontaneous
  Country: JP (occurrence: JP)
  Receive Date: 20180131
  Receipt Date: 20180131
  Transmission Date: 20180509
  Serious: Yes (Other)
  Sender: FDA-Public Use
  Company Number: JP-BRISTOL-MYERS SQUIBB COMPANY-BMS-2018-007305

PATIENT
  Sex: Male

DRUGS (1)
  1. ELIQUIS [Suspect]
     Active Substance: APIXABAN
     Indication: CEREBROVASCULAR ACCIDENT PROPHYLAXIS
     Dosage: UNK, BID
     Route: 048

REACTIONS (2)
  - Post procedural haemorrhage [Unknown]
  - Large intestine polyp [Unknown]
